FAERS Safety Report 17657812 (Version 1)
Quarter: 2020Q2

REPORT INFORMATION
  Report Type: Spontaneous
  Country: US (occurrence: US)
  Receive Date: 20200411
  Receipt Date: 20200411
  Transmission Date: 20200713
  Serious: Yes (Other)
  Sender: FDA-Public Use
  Company Number: US-AMGEN INC.-USASP2019218739

PATIENT

DRUGS (1)
  1. AIMOVIG [Suspect]
     Active Substance: ERENUMAB-AOOE
     Indication: MIGRAINE
     Dosage: UNK
     Route: 065
     Dates: start: 201907, end: 201907

REACTIONS (11)
  - Palpitations [Unknown]
  - Gastrooesophageal reflux disease [Recovered/Resolved]
  - Tinnitus [Unknown]
  - Vomiting [Unknown]
  - Cognitive disorder [Unknown]
  - Abdominal distension [Recovered/Resolved]
  - Constipation [Recovered/Resolved]
  - Mental fatigue [Unknown]
  - Asthma late onset [Unknown]
  - Neuropathy peripheral [Unknown]
  - Injection site pain [Unknown]

NARRATIVE: CASE EVENT DATE: 2019
